FAERS Safety Report 26174124 (Version 1)
Quarter: 2025Q4

REPORT INFORMATION
  Report Type: Spontaneous
  Country: US (occurrence: None)
  Receive Date: 20251217
  Receipt Date: 20251217
  Transmission Date: 20260118
  Serious: No
  Sender: FDA-CTU
  Company Number: None

PATIENT
  Age: 63 Year
  Sex: Male

DRUGS (2)
  1. LENALIDOMIDE [Suspect]
     Active Substance: LENALIDOMIDE
     Indication: Plasmacytoma
     Dosage: 15 MG DAILY ORAL
     Route: 048
     Dates: start: 20250827
  2. POMALYST [Concomitant]
     Active Substance: POMALIDOMIDE

REACTIONS (3)
  - Myocardial infarction [None]
  - Therapy interrupted [None]
  - Coma [None]

NARRATIVE: CASE EVENT DATE: 20251109
